FAERS Safety Report 6120795-9 (Version None)
Quarter: 2009Q1

REPORT INFORMATION
  Report Type: 
  Country: None (occurrence: None)
  Receive Date: 20090317
  Receipt Date: 20090310
  Transmission Date: 20090719
  Serious: Yes (Hospitalization)
  Sender: FDA-Public Use
  Company Number: CA-ABBOTT-09P-028-0561785-00

PATIENT
  Sex: Male

DRUGS (2)
  1. LUPRON DEPOT [Suspect]
     Indication: PROSTATE CANCER
     Route: 050
     Dates: start: 20050804
  2. DIOVAN HCD [Concomitant]
     Indication: DRUG USE FOR UNKNOWN INDICATION
     Dosage: 160/125 MG

REACTIONS (2)
  - FALL [None]
  - HIP FRACTURE [None]
